FAERS Safety Report 6928927-7 (Version None)
Quarter: 2010Q3

REPORT INFORMATION
  Report Type: 
  Country: None (occurrence: None)
  Receive Date: 20100817
  Receipt Date: 20100805
  Transmission Date: 20110219
  Serious: Yes (Other)
  Sender: FDA-Public Use
  Company Number: US-PFIZER INC-2010099369

PATIENT
  Age: 67 Year
  Sex: Male
  Weight: 88.435 kg

DRUGS (1)
  1. XALATAN [Suspect]
     Indication: INTRAOCULAR PRESSURE INCREASED
     Dosage: 1 DROP IN EACH EYE ONCE A DAY
     Route: 047
     Dates: start: 20100301

REACTIONS (3)
  - BLOOD PRESSURE INCREASED [None]
  - FRUSTRATION [None]
  - HEADACHE [None]
